FAERS Safety Report 7972638-6 (Version None)
Quarter: 2011Q4

REPORT INFORMATION
  Report Type: 
  Country: None (occurrence: None)
  Receive Date: 20111213
  Receipt Date: 20111205
  Transmission Date: 20120403
  Serious: Yes (Other)
  Sender: FDA-Public Use
  Company Number: US-JNJFOC-20111202833

PATIENT
  Sex: Female
  Weight: 65.77 kg

DRUGS (1)
  1. LEVOFLOXACIN [Suspect]
     Indication: ARTHRALGIA
     Route: 065

REACTIONS (2)
  - ADVERSE EVENT [None]
  - BREAST CANCER [None]
